FAERS Safety Report 5515024-0 (Version None)
Quarter: 2007Q4

REPORT INFORMATION
  Report Type: 
  Country: None (occurrence: None)
  Receive Date: 20071113
  Receipt Date: 20061120
  Transmission Date: 20080405
  Serious: No
  Sender: FDA-Public Use
  Company Number: A0628101A

PATIENT
  Age: 69 Year
  Sex: Male

DRUGS (2)
  1. COREG [Suspect]
     Indication: DRUG USE FOR UNKNOWN INDICATION
     Dosage: 6.25MG FOUR TIMES PER DAY
     Route: 048
     Dates: start: 20061108
  2. PRAVACHOL [Concomitant]

REACTIONS (5)
  - ABDOMINAL PAIN UPPER [None]
  - HEADACHE [None]
  - HYPOAESTHESIA [None]
  - ORAL MUCOSAL BLISTERING [None]
  - PAIN IN EXTREMITY [None]
